FAERS Safety Report 25347436 (Version 3)
Quarter: 2025Q3

REPORT INFORMATION
  Report Type: Spontaneous
  Country: JP (occurrence: JP)
  Receive Date: 20250522
  Receipt Date: 20250809
  Transmission Date: 20251021
  Serious: Yes (Other)
  Sender: ALEXION PHARMACEUTICALS
  Company Number: JP-ASTRAZENECA-250046309_020520_P_1

PATIENT
  Age: 86 Year
  Sex: Male

DRUGS (2)
  1. ESOMEPRAZOLE [4]
     Active Substance: ESOMEPRAZOLE
  2. ESOMEPRAZOLE [Suspect]
     Active Substance: ESOMEPRAZOLE

REACTIONS (1)
  - Atrial fibrillation [Unknown]
